FAERS Safety Report 9624264 (Version 3)
Quarter: 2013Q4

REPORT INFORMATION
  Report Type: Spontaneous
  Country: FR (occurrence: FR)
  Receive Date: 20131015
  Receipt Date: 20131218
  Transmission Date: 20140711
  Serious: Yes (Hospitalization)
  Sender: FDA-Public Use
  Company Number: FR-ROCHE-1288782

PATIENT
  Age: 53 Year
  Sex: Female
  Weight: 50 kg

DRUGS (6)
  1. HERCEPTIN [Suspect]
     Indication: HER-2 POSITIVE BREAST CANCER
     Dosage: 150 MG; LAST DOSE PRIOR TO EVENT : 16/AUG/2013.
     Route: 042
     Dates: start: 20130612, end: 20130816
  2. IXPRIM [Concomitant]
  3. EMEND [Concomitant]
  4. NEULASTA [Concomitant]
     Route: 065
  5. SOLUPRED (FRANCE) [Concomitant]
  6. DOMPERIDONE [Concomitant]

REACTIONS (2)
  - Papilloedema [Not Recovered/Not Resolved]
  - Visual acuity reduced [Recovering/Resolving]
